FAERS Safety Report 19780666 (Version 1)
Quarter: 2021Q3

REPORT INFORMATION
  Report Type: Spontaneous
  Country: US (occurrence: US)
  Receive Date: 20210902
  Receipt Date: 20210902
  Transmission Date: 20211014
  Serious: Yes (Hospitalization)
  Sender: FDA-Public Use
  Company Number: US-MYLANLABS-2021M1057397

PATIENT
  Age: 74 Year
  Sex: Female

DRUGS (1)
  1. MAGNESIUM CITRATE. [Suspect]
     Active Substance: MAGNESIUM CITRATE
     Indication: CONSTIPATION
     Dosage: 1.735G IN 300 ML SOLUTION; INGESTED THREE BOTTLES; EACH CONTAINED 300 ML
     Route: 048

REACTIONS (4)
  - Intestinal ischaemia [Recovering/Resolving]
  - Intestinal infarction [Recovering/Resolving]
  - Hypermagnesaemia [Recovered/Resolved]
  - Overdose [Recovering/Resolving]
